FAERS Safety Report 7390053-3 (Version None)
Quarter: 2011Q2

REPORT INFORMATION
  Report Type: 
  Country: None (occurrence: None)
  Receive Date: 20110401
  Receipt Date: 20110323
  Transmission Date: 20111010
  Serious: Yes (Hospitalization)
  Sender: FDA-Public Use
  Company Number: FR-B.I. PHARMACEUTICALS,INC./RIDGEFIELD-2011-FF-00297FF

PATIENT
  Age: 76 Year
  Sex: Male

DRUGS (5)
  1. PRADAXA [Suspect]
     Dosage: 150 MG
     Route: 048
     Dates: start: 20110208, end: 20110301
  2. MOPRAL [Suspect]
     Dosage: 40 MG
     Route: 048
     Dates: start: 20110207, end: 20110301
  3. RIFADIN [Suspect]
     Route: 051
     Dates: start: 20110210, end: 20110301
  4. VANCOMYCINE [Suspect]
     Dosage: 3 G
     Route: 042
     Dates: start: 20110210, end: 20110224
  5. LASIX [Concomitant]

REACTIONS (3)
  - DRUG RASH WITH EOSINOPHILIA AND SYSTEMIC SYMPTOMS [None]
  - DEVICE DISLOCATION [None]
  - CLONUS [None]
